FAERS Safety Report 5684294-0 (Version None)
Quarter: 2008Q1

REPORT INFORMATION
  Report Type: 
  Country: None (occurrence: None)
  Receive Date: 20080327
  Receipt Date: 20080327
  Transmission Date: 20080703
  Serious: Yes (Life-Threatening, Hospitalization, Disabling)
  Sender: FDA-Public Use
  Company Number: None

PATIENT
  Age: 48 Year
  Sex: Female
  Weight: 159 kg

DRUGS (11)
  1. WARFARIN SODIUM [Suspect]
     Indication: HEART VALVE REPLACEMENT
     Dosage: 10 MG  DAILY  PO
     Route: 048
     Dates: start: 20040101, end: 20080220
  2. CLONIDINE [Concomitant]
  3. AMBIEN [Concomitant]
  4. LASIX [Concomitant]
  5. HECTOROL [Concomitant]
  6. IRON [Concomitant]
  7. LISINOPRIL [Concomitant]
  8. ZAROXOLYN [Concomitant]
  9. PROTONIX [Concomitant]
  10. VITAMIN D [Concomitant]
  11. ARANESP [Concomitant]

REACTIONS (3)
  - GASTROINTESTINAL HAEMORRHAGE [None]
  - INTERNATIONAL NORMALISED RATIO INCREASED [None]
  - NO THERAPEUTIC RESPONSE [None]
